FAERS Safety Report 6250010-7 (Version None)
Quarter: 2009Q2

REPORT INFORMATION
  Report Type: 
  Country: None (occurrence: None)
  Receive Date: 20090629
  Receipt Date: 20090618
  Transmission Date: 20091009
  Serious: Yes (Hospitalization)
  Sender: FDA-Public Use
  Company Number: PHHY2009GB22537

PATIENT
  Sex: Female

DRUGS (2)
  1. STALEVO 100 [Suspect]
     Indication: PARKINSON'S DISEASE
     Dosage: 150 MG X 4
     Route: 048
  2. STALEVO 100 [Suspect]
     Dosage: 150 MG X 5
     Route: 048

REACTIONS (4)
  - ASTHENIA [None]
  - FEELING ABNORMAL [None]
  - SYNCOPE [None]
  - TREMOR [None]
